FAERS Safety Report 9809280 (Version 1)
Quarter: 2014Q1

REPORT INFORMATION
  Report Type: Report from Study
  Country: DE (occurrence: DE)
  Receive Date: 20140110
  Receipt Date: 20140110
  Transmission Date: 20141002
  Serious: No
  Sender: FDA-Public Use
  Company Number: DE-US-EMD SERONO, INC.-7261802

PATIENT
  Sex: Female

DRUGS (3)
  1. REBIF [Suspect]
     Indication: MULTIPLE SCLEROSIS
     Route: 058
     Dates: end: 2006
  2. REBIF [Suspect]
     Route: 058
     Dates: end: 201310
  3. REBIF [Suspect]
     Route: 058

REACTIONS (5)
  - Multiple sclerosis relapse [Not Recovered/Not Resolved]
  - Injection site scar [Not Recovered/Not Resolved]
  - Injection site pain [Not Recovered/Not Resolved]
  - Injection site induration [Not Recovered/Not Resolved]
  - Fatigue [Recovering/Resolving]
